FAERS Safety Report 6573164-1 (Version None)
Quarter: 2010Q1

REPORT INFORMATION
  Report Type: 
  Country: None (occurrence: None)
  Receive Date: 20100208
  Receipt Date: 20100202
  Transmission Date: 20100710
  Serious: Yes (Other)
  Sender: FDA-Public Use
  Company Number: DE-BAYER-201014516GPV

PATIENT
  Age: 49 Year
  Sex: Male
  Weight: 69 kg

DRUGS (9)
  1. NEXAVAR [Suspect]
     Indication: METASTATIC MALIGNANT MELANOMA
     Dosage: TOTAL DAILY DOSE: 200 MG  UNIT DOSE: 200 MG
     Route: 065
     Dates: start: 20080901, end: 20091008
  2. NEXAVAR [Suspect]
     Dosage: UNIT DOSE: 200 MG
     Route: 065
     Dates: start: 20091009
  3. DACARBAZINE [Concomitant]
     Route: 065
     Dates: start: 20090201, end: 20091001
  4. MUPHORAN [Concomitant]
     Route: 042
     Dates: start: 20091001
  5. TEMODAL [Concomitant]
  6. URBASON [Concomitant]
     Dosage: 2X1
     Route: 065
  7. CARBAMAZEPINE [Concomitant]
     Dosage: 2X1
     Route: 065
  8. MST [Concomitant]
     Indication: ANALGESIC THERAPY
     Dosage: 2X10MG
     Route: 065
  9. FORTECORTIN [Concomitant]
     Indication: ANALGESIC THERAPY

REACTIONS (4)
  - DIARRHOEA [None]
  - MALIGNANT MELANOMA [None]
  - METASTASES TO CENTRAL NERVOUS SYSTEM [None]
  - PANCYTOPENIA [None]
